FAERS Safety Report 11852900 (Version 2)
Quarter: 2015Q4

REPORT INFORMATION
  Report Type: Spontaneous
  Country: IT (occurrence: IT)
  Receive Date: 20151218
  Receipt Date: 20151224
  Transmission Date: 20160305
  Serious: Yes (Other)
  Sender: FDA-Public Use
  Company Number: IT-SA-2015SA212776

PATIENT
  Age: 89 Year
  Sex: Male

DRUGS (9)
  1. NITROGLYCERINE [Concomitant]
     Active Substance: NITROGLYCERIN
  2. TAPAZOLE [Concomitant]
     Active Substance: METHIMAZOLE
  3. LANSOPRAZOLE. [Concomitant]
     Active Substance: LANSOPRAZOLE
  4. PRAMIPEXOLE. [Concomitant]
     Active Substance: PRAMIPEXOLE
  5. TRITTICO [Suspect]
     Active Substance: TRAZODONE HYDROCHLORIDE
     Route: 065
  6. APROVEL [Concomitant]
     Active Substance: IRBESARTAN
  7. FOLINA [Concomitant]
     Active Substance: FOLIC ACID
  8. FUROSEMIDE. [Suspect]
     Active Substance: FUROSEMIDE
     Route: 065
  9. CARVEDILOL. [Concomitant]
     Active Substance: CARVEDILOL

REACTIONS (3)
  - Hyponatraemia [Unknown]
  - Blood osmolarity decreased [Unknown]
  - Seizure [Unknown]

NARRATIVE: CASE EVENT DATE: 20151126
